FAERS Safety Report 4830046-0 (Version None)
Quarter: 2005Q4

REPORT INFORMATION
  Report Type: 
  Country: None (occurrence: None)
  Receive Date: 20051115
  Receipt Date: 20051115
  Transmission Date: 20060501
  Serious: Yes (Hospitalization)
  Sender: FDA-Public Use
  Company Number: None

PATIENT
  Age: 81 Year
  Sex: Male
  Weight: 73.0291 kg

DRUGS (2)
  1. CLOPIDOGREL   75MG [Suspect]
     Indication: CORONARY ARTERY SURGERY
     Dosage: 75 MG DAILY PO
     Route: 048
     Dates: start: 20001001, end: 20051114
  2. ASPIRIN [Suspect]
     Dosage: 325 MG DAILY PO
     Route: 048
     Dates: start: 20000901, end: 20051014

REACTIONS (2)
  - HAEMATURIA [None]
  - PROSTATIC SPECIFIC ANTIGEN INCREASED [None]
